FAERS Safety Report 5460114-4 (Version None)
Quarter: 2007Q3

REPORT INFORMATION
  Report Type: 
  Country: None (occurrence: None)
  Receive Date: 20070823
  Receipt Date: 20060926
  Transmission Date: 20080115
  Serious: Yes (Congenital Anomaly)
  Sender: FDA-Public Use
  Company Number: PHEH2006US12234

PATIENT
  Age: 1 Day
  Sex: Male

DRUGS (1)
  1. LOTENSIN [Suspect]
     Dosage: TRANSPLACENTAL
     Route: 064

REACTIONS (2)
  - CONGENITAL ANOMALY [None]
  - DRUG EXPOSURE DURING PREGNANCY [None]
